FAERS Safety Report 8051427-0 (Version None)
Quarter: 2012Q1

REPORT INFORMATION
  Report Type: 
  Country: None (occurrence: None)
  Receive Date: 20120117
  Receipt Date: 20120109
  Transmission Date: 20120608
  Serious: Yes (Disabling)
  Sender: FDA-Public Use
  Company Number: NO-ROCHE-746389

PATIENT
  Sex: Female

DRUGS (5)
  1. ACETAMINOPHEN [Concomitant]
     Indication: PYREXIA
  2. FOLIC ACID [Concomitant]
     Indication: COELIAC DISEASE
     Dosage: FREQUENCY: X1/6 DAYS PER WEEK
     Route: 048
  3. ACETAMINOPHEN [Concomitant]
  4. TAMIFLU [Suspect]
     Indication: H1N1 INFLUENZA
     Dosage: FREQUENCY AS REPORTED: X2
     Route: 048
     Dates: start: 20091017, end: 20091022
  5. ACTIVELLE [Concomitant]
     Indication: MENOPAUSAL SYMPTOMS
     Route: 048

REACTIONS (2)
  - RASH PUSTULAR [None]
  - PSORIATIC ARTHROPATHY [None]
